FAERS Safety Report 9196156 (Version 2)
Quarter: 2013Q2

REPORT INFORMATION
  Report Type: Spontaneous
  Country: US (occurrence: US)
  Receive Date: 20130328
  Receipt Date: 20130430
  Transmission Date: 20140414
  Serious: Yes (Other)
  Sender: FDA-Public Use
  Company Number: US-BAYER-2013-038760

PATIENT
  Age: 81 Year
  Sex: Male

DRUGS (4)
  1. BAYER ASPIRIN REGIMEN ADULT LOW STRENGTH [Suspect]
     Indication: PRODUCT USED FOR UNKNOWN INDICATION
     Route: 065
  2. XARELTO [Interacting]
     Indication: CEREBROVASCULAR ACCIDENT PROPHYLAXIS
     Dosage: 1 DF, QD
     Route: 048
  3. XARELTO [Interacting]
     Indication: ATRIAL FIBRILLATION
  4. COUMADIN [Interacting]
     Indication: PRODUCT USED FOR UNKNOWN INDICATION
     Route: 065

REACTIONS (5)
  - Subdural haematoma [Recovering/Resolving]
  - Brain herniation [None]
  - Arterial occlusive disease [None]
  - Influenza [Recovering/Resolving]
  - Labelled drug-drug interaction medication error [None]
